FAERS Safety Report 22372912 (Version 2)
Quarter: 2025Q2

REPORT INFORMATION
  Report Type: Spontaneous
  Country: FR (occurrence: FR)
  Receive Date: 20230526
  Receipt Date: 20250616
  Transmission Date: 20250717
  Serious: Yes (Death, Life-Threatening, Hospitalization, Other)
  Sender: PFIZER
  Company Number: None

PATIENT
  Age: 77 Year
  Sex: Female
  Weight: 56 kg

DRUGS (9)
  1. XALKORI [Suspect]
     Active Substance: CRIZOTINIB
     Indication: Lung adenocarcinoma stage IV
     Dosage: 250 MG, 2X/DAY
     Dates: start: 20221118, end: 20221228
  2. HYDROCORTISONE [Concomitant]
     Active Substance: HYDROCORTISONE
     Dosage: 10 MG, 2X/DAY, MORNING AND NOON
  3. PRIMPERAN [Concomitant]
     Active Substance: METOCLOPRAMIDE HYDROCHLORIDE
  4. NEFOPAM [Concomitant]
     Active Substance: NEFOPAM
  5. TRAMADOL [Concomitant]
     Active Substance: TRAMADOL
  6. ACETAMINOPHEN [Concomitant]
     Active Substance: ACETAMINOPHEN
  7. BUDESONIDE [Concomitant]
     Active Substance: BUDESONIDE
     Dosage: 0.25 MG, 2X/DAY
     Route: 055
  8. ATROVENT [Concomitant]
     Active Substance: IPRATROPIUM BROMIDE
     Dosage: UNK UNK, 3X/DAY
     Route: 055
  9. PIPERACILLIN SODIUM\TAZOBACTAM SODIUM [Concomitant]
     Active Substance: PIPERACILLIN SODIUM\TAZOBACTAM SODIUM
     Dosage: 4 G, 4X/DAY

REACTIONS (15)
  - Acute respiratory distress syndrome [Fatal]
  - Pleural effusion [Fatal]
  - Altered state of consciousness [Fatal]
  - Malignant neoplasm progression [Fatal]
  - Lung adenocarcinoma stage IV [Fatal]
  - Hepatitis fulminant [Recovering/Resolving]
  - Thrombocytopenia [Recovering/Resolving]
  - Renal failure [Recovering/Resolving]
  - Toxic skin eruption [Recovering/Resolving]
  - Septic shock [Unknown]
  - Viral infection [Unknown]
  - Face oedema [Unknown]
  - Rash maculo-papular [Unknown]
  - Erythema [Unknown]
  - Tongue coated [Unknown]

NARRATIVE: CASE EVENT DATE: 20221223
